FAERS Safety Report 14327663 (Version 9)
Quarter: 2022Q1

REPORT INFORMATION
  Report Type: Spontaneous
  Country: NL (occurrence: NL)
  Receive Date: 20171227
  Receipt Date: 20220103
  Transmission Date: 20220424
  Serious: Yes (Life-Threatening, Hospitalization, Other)
  Sender: FDA-Public Use
  Company Number: NL-AUROBINDO-AUR-APL-2017-47169

PATIENT
  Age: 79 Year
  Sex: Male
  Weight: 73 kg

DRUGS (8)
  1. COLCHICINE [Suspect]
     Active Substance: COLCHICINE
     Indication: Crystalluria
     Dosage: 50 MILLIGRAM, ONCE A DAY
     Route: 065
     Dates: start: 20170614, end: 20170711
  2. COLCHICINE [Suspect]
     Active Substance: COLCHICINE
     Dosage: 1 DOSAGE FORM, ONCE A DAY
     Route: 065
     Dates: start: 20170614, end: 20170711
  3. LERCANIDIPINE [Suspect]
     Active Substance: LERCANIDIPINE
     Indication: Hypertension
     Dosage: 10 MILLIGRAM, ONCE A DAY, 1 X PER DAG 1STUK
     Route: 065
     Dates: start: 20170409
  4. PERINDOPRIL [Suspect]
     Active Substance: PERINDOPRIL
     Indication: Hypertension
     Dosage: 1 DOSAGE FORM, ONCE A DAY, 1 X PER DAG 1STUK
     Route: 065
     Dates: start: 20170614
  5. ALLOPURINOL [Suspect]
     Active Substance: ALLOPURINOL
     Indication: Blood urea
     Dosage: 50 MILLIGRAM, ONCE A DAY, 1 X PER DAG 1STUK
     Route: 065
     Dates: start: 20170614, end: 20170711
  6. ALLOPURINOL [Suspect]
     Active Substance: ALLOPURINOL
     Indication: Crystalluria
  7. INDAPAMIDE\PERINDOPRIL [Suspect]
     Active Substance: INDAPAMIDE\PERINDOPRIL
     Indication: Hypertension
     Dosage: 1 DOSAGE FORM, ONCE A DAY
     Route: 065
     Dates: start: 20170614
  8. MELATONIN [Concomitant]
     Active Substance: MELATONIN
     Indication: Product used for unknown indication
     Dosage: 0.2 MILLIGRAM
     Route: 065

REACTIONS (6)
  - Multiple organ dysfunction syndrome [Recovered/Resolved]
  - Respiratory failure [Recovered/Resolved]
  - Asthenia [Recovered/Resolved]
  - Thrombocytopenia [Unknown]
  - Leukopenia [Unknown]
  - Systemic inflammatory response syndrome [Unknown]

NARRATIVE: CASE EVENT DATE: 20170701
